FAERS Safety Report 18771601 (Version 2)
Quarter: 2022Q1

REPORT INFORMATION
  Report Type: Spontaneous
  Country: US (occurrence: US)
  Receive Date: 20210122
  Receipt Date: 20220127
  Transmission Date: 20220423
  Serious: Yes (Other)
  Sender: FDA-Public Use
  Company Number: US-PCCINC-2020-PEL-000075

PATIENT

DRUGS (2)
  1. GABLOFEN [Suspect]
     Active Substance: BACLOFEN
     Indication: Muscle spasticity
     Dosage: 1300 MICROGRAM, PER DAY
     Route: 037
  2. GABLOFEN [Suspect]
     Active Substance: BACLOFEN
     Indication: Cerebral palsy

REACTIONS (6)
  - Cerebrospinal fluid leakage [Unknown]
  - Implant site swelling [Unknown]
  - Abdominal discomfort [Unknown]
  - Muscle spasticity [Recovered/Resolved]
  - Tremor [Unknown]
  - Device connection issue [Recovered/Resolved]
